FAERS Safety Report 21854371 (Version 2)
Quarter: 2023Q1

REPORT INFORMATION
  Report Type: Report from Study
  Country: GB (occurrence: GB)
  Receive Date: 20230112
  Receipt Date: 20230117
  Transmission Date: 20230418
  Serious: No
  Sender: FDA-Public Use
  Company Number: GB-002147023-NVSC2022GB081515

PATIENT
  Sex: Male

DRUGS (4)
  1. COSENTYX [Suspect]
     Active Substance: SECUKINUMAB
     Indication: Psoriatic arthropathy
     Dosage: 300 MG, QMO
     Route: 065
     Dates: start: 202110
  2. COSENTYX [Suspect]
     Active Substance: SECUKINUMAB
     Dosage: 300 MG
     Route: 065
     Dates: start: 202206
  3. THYROXINE [Suspect]
     Active Substance: LEVOTHYROXINE
     Indication: Arthralgia
     Dosage: UNK
     Route: 065
  4. THYROXINE [Suspect]
     Active Substance: LEVOTHYROXINE
     Indication: Rheumatic disorder

REACTIONS (3)
  - Limb injury [Recovering/Resolving]
  - Accidental overdose [Unknown]
  - Product use in unapproved indication [Unknown]
